FAERS Safety Report 6152647-2 (Version None)
Quarter: 2009Q2

REPORT INFORMATION
  Report Type: 
  Country: None (occurrence: None)
  Receive Date: 20090413
  Receipt Date: 20090406
  Transmission Date: 20091009
  Serious: Yes (Hospitalization)
  Sender: FDA-Public Use
  Company Number: NZ-ROCHE-626264

PATIENT
  Age: 70 Year
  Sex: Female

DRUGS (1)
  1. XELODA [Suspect]
     Route: 065

REACTIONS (2)
  - DIARRHOEA [None]
  - INTESTINAL OBSTRUCTION [None]
